FAERS Safety Report 12558442 (Version 3)
Quarter: 2016Q3

REPORT INFORMATION
  Report Type: Spontaneous
  Country: JP (occurrence: JP)
  Receive Date: 20160714
  Receipt Date: 20160902
  Transmission Date: 20161109
  Serious: Yes (Hospitalization, Other)
  Sender: FDA-Public Use
  Company Number: JP-TEVA-675658ISR

PATIENT
  Age: 53 Year
  Sex: Female

DRUGS (15)
  1. LEVODOPA AND CARBIDOPA [Interacting]
     Active Substance: CARBIDOPA\LEVODOPA
     Dosage: INCEASED TO 200-300MG
  2. BROTIZOLAM [Concomitant]
     Active Substance: BROTIZOLAM
  3. OLANZAPINE. [Suspect]
     Active Substance: OLANZAPINE
     Dosage: 5-10MG
  4. LEVODOPA AND CARBIDOPA [Interacting]
     Active Substance: CARBIDOPA\LEVODOPA
     Indication: DEMENTIA WITH LEWY BODIES
  5. LEVODOPA AND CARBIDOPA [Interacting]
     Active Substance: CARBIDOPA\LEVODOPA
     Dates: start: 201405
  6. TIAPRIDE HYDROCHLORIDE [Concomitant]
     Active Substance: TIAPRIDE HYDROCHLORIDE
     Dosage: 50-150 MG
     Dates: start: 2013
  7. QUETIAPINE. [Suspect]
     Active Substance: QUETIAPINE
  8. ROPINIROLE. [Suspect]
     Active Substance: ROPINIROLE
     Indication: DEMENTIA WITH LEWY BODIES
     Dosage: 1MG TO 6 MG
     Dates: start: 201411
  9. BIPERIDEN [Concomitant]
     Active Substance: BIPERIDEN
     Indication: PARKINSON^S DISEASE
  10. ROTIGOTINE [Suspect]
     Active Substance: ROTIGOTINE
     Indication: DEMENTIA WITH LEWY BODIES
     Dates: start: 2014
  11. BIPERIDEN [Concomitant]
     Active Substance: BIPERIDEN
     Dates: start: 2013
  12. PEROSPIRONE HYDROCHLORIDE [Concomitant]
     Active Substance: PEROSPIRONE HYDROCHLORIDE
     Dosage: 8-16 MG
     Dates: start: 2013
  13. RISPERIDONE. [Suspect]
     Active Substance: RISPERIDONE
  14. BIPERIDEN [Concomitant]
     Active Substance: BIPERIDEN
     Dates: start: 2013
  15. CLONAZEPAM. [Concomitant]
     Active Substance: CLONAZEPAM

REACTIONS (6)
  - Condition aggravated [Recovering/Resolving]
  - Drug hypersensitivity [Recovering/Resolving]
  - Drug interaction [Unknown]
  - Dyskinesia [Recovering/Resolving]
  - Oromandibular dystonia [Recovering/Resolving]
  - Altered state of consciousness [Recovering/Resolving]
